FAERS Safety Report 7593642-6 (Version None)
Quarter: 2011Q3

REPORT INFORMATION
  Report Type: 
  Country: None (occurrence: None)
  Receive Date: 20110706
  Receipt Date: 20110630
  Transmission Date: 20111222
  Serious: Yes (Other)
  Sender: FDA-Public Use
  Company Number: PHHY2011BR43335

PATIENT
  Sex: Female

DRUGS (2)
  1. FORMOTEROL FUMARATE [Suspect]
     Dosage: 12/400 UG
  2. FORMOTEROL FUMARATE [Suspect]
     Dosage: 12/200 UG

REACTIONS (2)
  - TREMOR [None]
  - DEAFNESS [None]
